FAERS Safety Report 16084394 (Version 1)
Quarter: 2019Q1

REPORT INFORMATION
  Report Type: Spontaneous
  Country: MX (occurrence: MX)
  Receive Date: 20190318
  Receipt Date: 20190318
  Transmission Date: 20190418
  Serious: Yes (Hospitalization, Other)
  Sender: FDA-Public Use
  Company Number: PHHY2019MX044546

PATIENT
  Age: 66 Year
  Sex: Female
  Weight: 52 kg

DRUGS (2)
  1. EXFORGE HCT [Suspect]
     Active Substance: AMLODIPINE BESYLATE\HYDROCHLOROTHIAZIDE\VALSARTAN
     Dosage: 0.25 DF, QD (? (10/320/12.5 MG)
     Route: 048
     Dates: start: 201810
  2. EXFORGE HCT [Suspect]
     Active Substance: AMLODIPINE BESYLATE\HYDROCHLOROTHIAZIDE\VALSARTAN
     Indication: HYPERTENSION
     Dosage: 1 DF, QD (10/320/12.5 MG)
     Route: 048
     Dates: end: 201810

REACTIONS (9)
  - Product prescribing error [Unknown]
  - Ill-defined disorder [Unknown]
  - Cardiac fibrillation [Recovered/Resolved]
  - Hypotension [Not Recovered/Not Resolved]
  - Tachycardia [Recovered/Resolved]
  - Arrhythmia [Unknown]
  - Syncope [Recovered/Resolved]
  - Atrial enlargement [Unknown]
  - Cardiomegaly [Unknown]

NARRATIVE: CASE EVENT DATE: 201810
